FAERS Safety Report 5238695-5 (Version None)
Quarter: 2007Q1

REPORT INFORMATION
  Report Type: 
  Country: None (occurrence: None)
  Receive Date: 20070215
  Receipt Date: 20070206
  Transmission Date: 20070707
  Serious: Yes (Death)
  Sender: FDA-Public Use
  Company Number: US-SHR-US-2006-032608

PATIENT
  Age: 24 Year
  Sex: Male
  Weight: 68 kg

DRUGS (4)
  1. BETASERON [Suspect]
     Indication: SECONDARY PROGRESSIVE MULTIPLE SCLEROSIS
     Dosage: 4 MIU, EVERY 2D
     Route: 058
     Dates: start: 20060921, end: 20061022
  2. KEPPRA [Concomitant]
     Indication: IRRITABILITY
     Dosage: 1000 MG, 2X/DAY
     Route: 048
  3. DILANTIN [Concomitant]
     Dates: start: 20060101
  4. PREDNISONE [Concomitant]

REACTIONS (1)
  - CONVULSION [None]
